FAERS Safety Report 9005990 (Version 1)
Quarter: 2013Q1

REPORT INFORMATION
  Report Type: Spontaneous
  Country: US (occurrence: US)
  Receive Date: 20130109
  Receipt Date: 20130109
  Transmission Date: 20140127
  Serious: No
  Sender: FDA-Public Use
  Company Number: US-PFIZER INC-2013009592

PATIENT
  Age: 47 Year
  Sex: Male
  Weight: 132 kg

DRUGS (3)
  1. CHANTIX [Suspect]
     Indication: SMOKING CESSATION THERAPY
     Dosage: 0.5 MG, DAILY
     Dates: start: 20121231
  2. CHANTIX [Suspect]
     Dosage: 1 MG, 2X/DAY
  3. TRICOR [Concomitant]
     Indication: BLOOD CHOLESTEROL ABNORMAL
     Dosage: 145 MG, DAILY

REACTIONS (1)
  - Rash [Not Recovered/Not Resolved]
